FAERS Safety Report 13273391 (Version 1)
Quarter: 2017Q1

REPORT INFORMATION
  Report Type: Report from Study
  Country: MX (occurrence: MX)
  Receive Date: 20170227
  Receipt Date: 20170227
  Transmission Date: 20170428
  Serious: Yes (Life-Threatening, Other)
  Sender: FDA-Public Use
  Company Number: PHHY2017MX029860

PATIENT
  Age: 17 Year
  Sex: Male

DRUGS (1)
  1. REVOLADE [Suspect]
     Active Substance: ELTROMBOPAG
     Indication: IMMUNE THROMBOCYTOPENIC PURPURA
     Dosage: UNK UNK, QD
     Route: 065
     Dates: start: 201505, end: 201508

REACTIONS (3)
  - Platelet count decreased [Unknown]
  - Joint dislocation [Unknown]
  - Drug ineffective [Unknown]
